FAERS Safety Report 20517140 (Version 1)
Quarter: 2022Q1

REPORT INFORMATION
  Report Type: Report from Study
  Country: DE (occurrence: DE)
  Receive Date: 20220225
  Receipt Date: 20220225
  Transmission Date: 20220424
  Serious: Yes (Death, Hospitalization, Other)
  Sender: FDA-Public Use
  Company Number: DE-ALS-000538

PATIENT
  Age: 60 Year
  Sex: Male

DRUGS (1)
  1. METFORMIN [Suspect]
     Active Substance: METFORMIN HYDROCHLORIDE
     Indication: Type 2 diabetes mellitus
     Route: 065

REACTIONS (14)
  - Lactic acidosis [Unknown]
  - Somnolence [Unknown]
  - Hypoglycaemia [Unknown]
  - Hypothermia [Unknown]
  - Diarrhoea [Unknown]
  - Abdominal pain [Unknown]
  - Kussmaul respiration [Unknown]
  - Hypotonia [Unknown]
  - Acute kidney injury [Unknown]
  - Anuria [Unknown]
  - Continuous haemodiafiltration [Unknown]
  - Pneumonia [Unknown]
  - Circulatory collapse [Fatal]
  - Pulseless electrical activity [Unknown]
